FAERS Safety Report 5113390-1 (Version None)
Quarter: 2006Q3

REPORT INFORMATION
  Report Type: 
  Country: None (occurrence: None)
  Receive Date: 20060920
  Receipt Date: 20060907
  Transmission Date: 20061208
  Serious: Yes (Death, Hospitalization)
  Sender: FDA-Public Use
  Company Number: 229610

PATIENT
  Age: 65 Year
  Sex: Male
  Weight: 95 kg

DRUGS (9)
  1. MABTHERA (RITUXIMAB) CONC FOR SOLUTION FOR INFUSION [Suspect]
     Indication: B-CELL LYMPHOMA
     Dosage: 840 MG, UNK, INTRAVENOUS
     Route: 042
     Dates: start: 20060816
  2. CYCLOPHOSPHAMIDE [Suspect]
     Indication: B-CELL LYMPHOMA
     Dosage: 1575 MG, UNK, INTRAVENOUS
     Route: 042
     Dates: start: 20060816
  3. DOXORUBICIN HCL [Suspect]
     Indication: B-CELL LYMPHOMA
     Dosage: 105 MG, UNK, INTRAVENOUS
     Route: 042
     Dates: start: 20060816
  4. VINCRISTINE [Suspect]
     Indication: B-CELL LYMPHOMA
     Dosage: 2MG, UNK, INTRAVENOUS
     Route: 042
     Dates: start: 20060816
  5. PREDNISONE TAB [Suspect]
     Indication: B-CELL LYMPHOMA
     Dosage: 100 MG, UNK, ORAL
     Route: 048
     Dates: start: 20060816
  6. ACETAMINOPHEN [Concomitant]
  7. ONDANESTRON (ONDANSETRON) [Concomitant]
  8. CETIRIZINE HCL [Concomitant]
  9. NEULASTA [Concomitant]

REACTIONS (9)
  - DYSPNOEA [None]
  - ESCHERICHIA SEPSIS [None]
  - HYPOTONIA [None]
  - HYPOXIA [None]
  - INFECTION [None]
  - LEUKOPENIA [None]
  - MULTI-ORGAN FAILURE [None]
  - NAUSEA [None]
  - NEUTROPENIA [None]
